FAERS Safety Report 6619106-1 (Version None)
Quarter: 2010Q1

REPORT INFORMATION
  Report Type: 
  Country: None (occurrence: None)
  Receive Date: 20100308
  Receipt Date: 20100131
  Transmission Date: 20100710
  Serious: Yes (Other)
  Sender: FDA-Public Use
  Company Number: PHHY2010IT12833

PATIENT
  Sex: Male

DRUGS (7)
  1. TASIGNA [Suspect]
     Indication: MYELOID LEUKAEMIA
     Dosage: 400 MG, BID
  2. HUMALOG [Concomitant]
     Dosage: 10-12
  3. HUMALOG [Concomitant]
     Dosage: 3 OR 4
  4. HUMALOG [Concomitant]
     Dosage: 18 UNITS
  5. HUMALOG [Concomitant]
     Dosage: 3
  6. GLUCOPHAGE [Concomitant]
     Dosage: 1
  7. TICLOPIDINE HCL [Concomitant]

REACTIONS (7)
  - ARRHYTHMIA [None]
  - CONSTIPATION [None]
  - DIABETES MELLITUS INADEQUATE CONTROL [None]
  - HEART RATE INCREASED [None]
  - HYPOGLYCAEMIA [None]
  - PRURITUS [None]
  - RASH [None]
